FAERS Safety Report 9324058 (Version 1)
Quarter: 2013Q2

REPORT INFORMATION
  Report Type: Spontaneous
  Country: US (occurrence: US)
  Receive Date: 20130603
  Receipt Date: 20130603
  Transmission Date: 20140414
  Serious: Yes (Other)
  Sender: FDA-Public Use
  Company Number: US-BAYER-2013-065079

PATIENT
  Age: 39 Year
  Sex: Male
  Weight: 131 kg

DRUGS (7)
  1. BAYER GENUINE ASPIRIN ORIGINAL STRENGTH [Suspect]
     Indication: ISCHAEMIC HEART DISEASE PROPHYLAXIS
     Dosage: 1 DF, QD
     Route: 048
  2. MEVACOR [Concomitant]
  3. NIACIN [Concomitant]
  4. CENTRUM [MINERALS NOS,VITAMINS NOS] [Concomitant]
  5. GINSENG [Concomitant]
  6. COZAAR [Concomitant]
  7. COREG [Concomitant]

REACTIONS (3)
  - Myocardial infarction [None]
  - Myocardial infarction [None]
  - Inappropriate schedule of drug administration [None]
